FAERS Safety Report 11746995 (Version 1)
Quarter: 2015Q4

REPORT INFORMATION
  Report Type: Spontaneous
  Country: GB (occurrence: GB)
  Receive Date: 20151117
  Receipt Date: 20151117
  Transmission Date: 20160304
  Serious: Yes (Other)
  Sender: FDA-Public Use
  Company Number: GB-PFIZER INC-2015387503

PATIENT
  Age: 37 Year
  Sex: Female
  Weight: 87.53 kg

DRUGS (1)
  1. CHAMPIX [Suspect]
     Active Substance: VARENICLINE TARTRATE
     Indication: SMOKING CESSATION THERAPY
     Dosage: 1 MG, 2X/DAY
     Route: 048
     Dates: start: 20150906, end: 20151101

REACTIONS (4)
  - Aggression [Not Recovered/Not Resolved]
  - Tearfulness [Unknown]
  - Depression [Not Recovered/Not Resolved]
  - Feeling of despair [Unknown]

NARRATIVE: CASE EVENT DATE: 2015
